FAERS Safety Report 8946612 (Version 1)
Quarter: 2012Q4

REPORT INFORMATION
  Report Type: 
  Country: US (occurrence: US)
  Receive Date: 20121204
  Receipt Date: 20121204
  Transmission Date: 20130627
  Serious: Yes (Other)
  Sender: FDA-Public Use
  Company Number: US-AMGEN-USASP2012071154

PATIENT
  Age: 34 Year
  Sex: Female
  Weight: 76.64 kg

DRUGS (41)
  1. ENBREL [Suspect]
     Indication: PSORIASIS
     Dosage: 50 mg, qwk
     Route: 058
     Dates: start: 20121015
  2. DEMEROL [Concomitant]
     Dates: start: 20120315, end: 20120315
  3. DEMEROL [Concomitant]
     Dates: start: 20120315, end: 20120315
  4. HEPATITIS B VACCINE [Concomitant]
  5. HEPATITIS B VACCINE [Concomitant]
     Dates: start: 20000221, end: 20000221
  6. HYDROMORPHONE [Concomitant]
     Dosage: up to 4 mg UNK
     Dates: start: 20120317
  7. HYDROMORPHONE [Concomitant]
     Dosage: UNK
     Dates: start: 20120317
  8. HYDROMORPHONE [Concomitant]
     Dosage: UNK
     Dates: start: 20120317
  9. HAEMOPHILUS INFLUENZAE TYPE B [Concomitant]
     Dosage: UNK
     Dates: start: 20120112, end: 20120112
  10. INFLUENZA VACCINE [Concomitant]
  11. MENINGOCOCCAL CONJUGATE [Concomitant]
  12. MENINGOCOCCAL CONJUGATE [Concomitant]
     Dates: start: 20120121, end: 20120121
  13. PNEUMOCOCCAL POLYSACCHARIDE VACCINE [Concomitant]
     Dosage: UNK
     Dates: start: 20120112, end: 20120112
  14. PNEUMOCOCCAL POLYSACCHARIDE VACCINE [Concomitant]
     Dosage: UNK
     Dates: start: 20120114, end: 20120114
  15. TD [Concomitant]
     Dates: start: 20120510, end: 20120510
  16. TORADOL [Concomitant]
     Dosage: UNK
     Dates: start: 20120317
  17. TORADOL [Concomitant]
     Dosage: UNK
     Dates: start: 20120317
  18. TORADOL [Concomitant]
     Dosage: UNK
     Dates: start: 20120317
  19. ALBUTEROL HFA [Concomitant]
     Dosage: Inhale 2 Puft by mouth every 4 hours as needed for shortness of breath, wheezing, and cough.UNK
  20. AZELASTINE [Concomitant]
     Dosage: Use 1 Spray into each nostril 2 times daily. UNK
  21. CALCIUM MAGNESIUM WITH VITAMIN D3 [Concomitant]
     Dosage: Take 2 Tabs by mouth 2 times daily. Calbum 750 mg; Vitamin D 300 units: Magnesium 150 mg per tablet
     Route: 048
  22. CHOLECALCIFEROL [Concomitant]
     Dosage: Take 800 Units by mouth once daily- UNK
  23. CLOZEPAM [Concomitant]
     Dosage: Take 1-2 Tabs by mouth 2 times daily,UNK
  24. FEXOFENADINE [Concomitant]
     Dosage: Take I Tab by mouth at bedtime UNK
  25. FLUTICASONE [Concomitant]
     Dosage: Inhale 1 Puff by mouth 2 times daily. UNK
  26. FLUTICASONE PROPIONATE [Concomitant]
     Dosage: Use 1 Spray into each nostril 2 times daily. UNK
  27. LACTOBACILLUS [Concomitant]
     Dosage: Take I Cap by mouth once daily. UNK
  28. LCD [Concomitant]
     Dosage: 6% Apply at bedtime, UNK
  29. SALICYLIC ACID [Concomitant]
     Dosage: 6% Apply at bedtime, UNK
  30. LITHOBID [Concomitant]
     Dosage: 600 Mg in the AM, 900 mg in the aftemoon, 900 mg in the evening. For a total of 2400mg UNK
  31. LORATADIN [Concomitant]
     Dosage: Take I Tab by mouth once daily. UNK
  32. LURASIDONE [Concomitant]
     Dosage: Take I Tab by mouth once daily.
  33. VITAMINS WITH MINERALS [Concomitant]
     Dosage: Take 1 Tab by mouth once daily. UNK
  34. OMEGA-3 FATTY ACIDS [Concomitant]
     Dosage: Take 1 Cap by mouth once UNK
  35. NIFEREX                            /01214501/ [Concomitant]
     Dosage: 150 mg , take 1 capsule by mouth once daily,  UNK
  36. PRENATAL W/FERRUM FUMARATE+FOLIC ACID [Concomitant]
     Dosage: 1 Tab by mouth 2 times daily, UNK
  37. PROGESTERONE [Concomitant]
     Dosage: Apply half ml to fore arms daily UNK
  38. SUDAFED 12 HOUR [Concomitant]
     Dosage: take 1 tablet by mouth once daily UNK
  39. SALINE                             /00075401/ [Concomitant]
     Dosage: Put 1-2 Sprays into the noe 2 times daily, UNK
  40. SERTRALINE [Concomitant]
     Dosage: Take 2 Tabs by mouth once daily UNK
  41. KENALOG [Concomitant]
     Dosage: APPLY 2 TIMES DAILY. APPLY BID UNTIL IMPROVED AND THEN DECREASED TO ONCE A DAY FOR A WEEK AND UNK

REACTIONS (6)
  - Injection site erythema [Not Recovered/Not Resolved]
  - Injection site pruritus [Not Recovered/Not Resolved]
  - Injection site bruising [Not Recovered/Not Resolved]
  - Injection site reaction [Not Recovered/Not Resolved]
  - Injection site urticaria [Not Recovered/Not Resolved]
  - Injection site pain [Not Recovered/Not Resolved]
